FAERS Safety Report 4439552-4 (Version None)
Quarter: 2004Q3

REPORT INFORMATION
  Report Type: 
  Country: None (occurrence: None)
  Receive Date: 20040830
  Receipt Date: 20040823
  Transmission Date: 20050211
  Serious: Yes (Other)
  Sender: FDA-Public Use
  Company Number: RB-901-2004

PATIENT
  Age: 33 Year

DRUGS (1)
  1. BUPRENORPHINE HCL [Suspect]
     Indication: DRUG DEPENDENCE
     Dosage: 8 ML QD
     Route: 060

REACTIONS (1)
  - CACHEXIA [None]
